FAERS Safety Report 21178266 (Version 3)
Quarter: 2023Q2

REPORT INFORMATION
  Report Type: Spontaneous
  Country: US (occurrence: US)
  Receive Date: 20220805
  Receipt Date: 20230412
  Transmission Date: 20230722
  Serious: Yes (Other)
  Sender: FDA-Public Use
  Company Number: US-PFIZER INC-PV202200036427

PATIENT
  Sex: Male

DRUGS (24)
  1. LYSERGIDE [Suspect]
     Active Substance: LYSERGIDE
     Dosage: AVERAGE OF FOUR TIMES PER WEEK
  2. CANNABIS SATIVA SUBSP. INDICA TOP [Suspect]
     Active Substance: CANNABIS SATIVA SUBSP. INDICA TOP
     Dosage: UNK
  3. COCAINE [Suspect]
     Active Substance: COCAINE
     Dosage: UNK UNK, MONTHLY
  4. AMPHETAMINE [Suspect]
     Active Substance: AMPHETAMINE
     Dosage: UNK UNK, MONTHLY
  5. METHAMPHETAMINE [Suspect]
     Active Substance: METHAMPHETAMINE
     Dosage: UNK
  6. DULOXETINE [Concomitant]
     Active Substance: DULOXETINE
     Indication: Antidepressant therapy
     Dosage: 60 MG, DAILY
  7. GABAPENTIN [Concomitant]
     Active Substance: GABAPENTIN
     Dosage: 300 MG, 3X/DAY
  8. LEVETIRACETAM [Concomitant]
     Active Substance: LEVETIRACETAM
     Indication: Seizure
     Dosage: 1000 MG, 2X/DAY
  9. OLANZAPINE [Concomitant]
     Active Substance: OLANZAPINE
     Dosage: 5 MG, IN THE MORNING
  10. OLANZAPINE [Concomitant]
     Active Substance: OLANZAPINE
     Dosage: 15 MG, AT BEDTIME
  11. OLANZAPINE [Concomitant]
     Active Substance: OLANZAPINE
     Dosage: 5 MG, DAILY AT BEDTIME
  12. QUETIAPINE [Concomitant]
     Active Substance: QUETIAPINE
     Dosage: 100 MG AT BEDTIME
  13. HYDROXYZINE [Concomitant]
     Active Substance: HYDROXYZINE HYDROCHLORIDE
     Indication: Anxiety
     Dosage: 25-50 MG, TWICE A DAY AS NEEDED
  14. FOLIC ACID [Concomitant]
     Active Substance: FOLIC ACID
     Dosage: 1 MG, DAILY
  15. THIAMINE [Concomitant]
     Active Substance: THIAMINE
     Dosage: 100 MG, DAILY
  16. LORAZEPAM [Concomitant]
     Active Substance: LORAZEPAM
     Dosage: UNK
  17. CLONAZEPAM [Concomitant]
     Active Substance: CLONAZEPAM
     Indication: Illusion
     Dosage: 0.5 MG, 3X/DAY (1.5 MG, DAILY)
  18. CLONAZEPAM [Concomitant]
     Active Substance: CLONAZEPAM
     Dosage: 0.5, 2X/DAY
  19. ZIPRASIDONE [Concomitant]
     Active Substance: ZIPRASIDONE
     Indication: Affective disorder
     Dosage: 40 MG, 2X/DAY
  20. PRAZOSIN [Concomitant]
     Active Substance: PRAZOSIN
     Indication: Nightmare
     Dosage: UNK
  21. BUPROPION [Concomitant]
     Active Substance: BUPROPION
     Indication: Antidepressant therapy
     Dosage: 300 MG, DAILY
  22. LAMOTRIGINE [Concomitant]
     Active Substance: LAMOTRIGINE
     Indication: Seizure
     Dosage: 200 MG, 2X/DAY
  23. NALTREXONE [Concomitant]
     Active Substance: NALTREXONE
     Indication: Visual impairment
     Dosage: 50 MG, DAILY
  24. NALTREXONE [Concomitant]
     Active Substance: NALTREXONE
     Indication: Alcohol use disorder

REACTIONS (1)
  - Substance abuse [Recovering/Resolving]
